FAERS Safety Report 17593264 (Version 1)
Quarter: 2020Q1

REPORT INFORMATION
  Report Type: Other
  Country: US (occurrence: US)
  Receive Date: 20200327
  Receipt Date: 20200327
  Transmission Date: 20200409
  Serious: Yes (Other)
  Sender: FDA-Public Use
  Company Number: US-GUTHY-RENKER, LLC-2082068

PATIENT
  Age: 69 Year
  Sex: Female

DRUGS (1)
  1. MEANINGFUL BEAUTY WELLNESS SUPPLEMENT [Suspect]
     Active Substance: MINERALS\VITAMINS
     Indication: NUTRITIONAL SUPPLEMENTATION
     Dates: start: 20200314, end: 20200315

REACTIONS (2)
  - Swelling face [None]
  - Eye swelling [Recovered/Resolved]

NARRATIVE: CASE EVENT DATE: 20200314
